FAERS Safety Report 4750439-X (Version None)
Quarter: 2005Q3

REPORT INFORMATION
  Report Type: 
  Country: None (occurrence: None)
  Receive Date: 20050823
  Receipt Date: 20050629
  Transmission Date: 20060218
  Serious: Yes (Death, Hospitalization, Other)
  Sender: FDA-Public Use
  Company Number: PHEH2005US07333

PATIENT
  Sex: Female

DRUGS (13)
  1. ZOMETA [Suspect]
     Indication: MULTIPLE MYELOMA
     Dosage: 4 MG, ONCE/SINGLE
     Dates: start: 20050601, end: 20050601
  2. XELODA [Suspect]
     Indication: MULTIPLE MYELOMA
     Dates: start: 20050601
  3. NORVASK [Concomitant]
     Indication: HYPERTENSION
     Dosage: 10 MG, QD
  4. ATENOLOL [Concomitant]
     Indication: HYPERTENSION
     Dosage: 50 MG, QD
  5. LASIX [Concomitant]
     Indication: HYPERTENSION
     Dosage: 40 MG, QD
  6. ACCUPRIL [Concomitant]
     Indication: HYPERTENSION
     Dosage: 20 MG, BID
  7. POTASSIUM CHLORIDE [Concomitant]
     Dosage: UNK, QD
  8. NEURONTIN [Concomitant]
     Indication: NEUROPATHY
  9. LEVOXYL [Concomitant]
     Indication: HYPOTHYROIDISM
     Dosage: 75 MG, QD
  10. OSCAL [Concomitant]
  11. GLUCOPHAGE [Concomitant]
     Indication: DIABETES MELLITUS NON-INSULIN-DEPENDENT
  12. AMITRIPTYLINE HCL [Concomitant]
     Indication: DEPRESSION
     Dosage: 125 MG, QD
  13. ASPIRIN [Concomitant]
     Dosage: 325 MG, QD

REACTIONS (16)
  - ARRHYTHMIA [None]
  - ARTHRALGIA [None]
  - ATELECTASIS [None]
  - BRADYCARDIA [None]
  - CARDIAC FAILURE CONGESTIVE [None]
  - CARDIAC PACEMAKER INSERTION [None]
  - CHEST PAIN [None]
  - DEPRESSED LEVEL OF CONSCIOUSNESS [None]
  - DIZZINESS [None]
  - HYPOTENSION [None]
  - INTUBATION [None]
  - LOSS OF CONSCIOUSNESS [None]
  - MALIGNANT NEOPLASM PROGRESSION [None]
  - NODAL ARRHYTHMIA [None]
  - PAIN IN EXTREMITY [None]
  - RESPIRATORY ARREST [None]
